FAERS Safety Report 17500794 (Version 1)
Quarter: 2020Q1

REPORT INFORMATION
  Report Type: Spontaneous
  Country: US (occurrence: US)
  Receive Date: 20200305
  Receipt Date: 20200305
  Transmission Date: 20200409
  Serious: Yes (Death, Hospitalization)
  Sender: FDA-Public Use
  Company Number: US-TEVA-2020-US-1193391

PATIENT
  Age: 27 Year
  Sex: Male

DRUGS (4)
  1. LOPERAMIDE [Suspect]
     Active Substance: LOPERAMIDE
     Route: 048
  2. MAGNESIUM [Suspect]
     Active Substance: MAGNESIUM
     Indication: TOXICITY TO VARIOUS AGENTS
     Route: 065
  3. SODIUM BICARBONATE. [Suspect]
     Active Substance: SODIUM BICARBONATE
     Indication: TOXICITY TO VARIOUS AGENTS
     Route: 065
  4. NALOXONE [Suspect]
     Active Substance: NALOXONE
     Indication: TOXICITY TO VARIOUS AGENTS
     Route: 065

REACTIONS (12)
  - Cardiac arrest [Fatal]
  - Electrocardiogram QRS complex prolonged [Fatal]
  - Mydriasis [Fatal]
  - Torsade de pointes [Fatal]
  - Overdose [Unknown]
  - Drug ineffective [Unknown]
  - Unresponsive to stimuli [Fatal]
  - Sinus rhythm [Fatal]
  - Toxicity to various agents [Fatal]
  - Drug abuse [Unknown]
  - Brain oedema [Fatal]
  - Pupil fixed [Fatal]
